FAERS Safety Report 6857687-3 (Version None)
Quarter: 2010Q3

REPORT INFORMATION
  Report Type: 
  Country: None (occurrence: None)
  Receive Date: 20100719
  Receipt Date: 20080130
  Transmission Date: 20110219
  Serious: No
  Sender: FDA-Public Use
  Company Number: US-PFIZER INC-2008010427

PATIENT
  Sex: Female

DRUGS (4)
  1. CHANTIX [Suspect]
     Indication: SMOKING CESSATION THERAPY
     Dates: start: 20080129
  2. MULTI-VITAMINS [Concomitant]
  3. CALCIUM [Concomitant]
  4. ALAVERT [Concomitant]

REACTIONS (1)
  - CONSTIPATION [None]
